FAERS Safety Report 8496136-9 (Version None)
Quarter: 2012Q3

REPORT INFORMATION
  Report Type: 
  Country: None (occurrence: None)
  Receive Date: 20120709
  Receipt Date: 20120702
  Transmission Date: 20120928
  Serious: Yes (Other)
  Sender: FDA-Public Use
  Company Number: GB-UCBSA-060973

PATIENT
  Sex: Female

DRUGS (1)
  1. KEPPRA [Suspect]

REACTIONS (4)
  - PREGNANCY [None]
  - ECTOPIC PREGNANCY [None]
  - MATERNAL EXPOSURE TIMING UNSPECIFIED [None]
  - AMENORRHOEA [None]
